APPROVED DRUG PRODUCT: XEGLYZE
Active Ingredient: ABAMETAPIR
Strength: 0.74%
Dosage Form/Route: LOTION;TOPICAL
Application: N206966 | Product #001
Applicant: HATCHTECH PTY LTD
Approved: Jul 24, 2020 | RLD: Yes | RS: No | Type: DISCN

PATENTS:
Patent 7812163 | Expires: Oct 28, 2026
Patent 10292389 | Expires: Dec 17, 2034